FAERS Safety Report 7376050-2 (Version None)
Quarter: 2011Q1

REPORT INFORMATION
  Report Type: 
  Country: None (occurrence: None)
  Receive Date: 20110325
  Receipt Date: 20110323
  Transmission Date: 20110831
  Serious: Yes (Hospitalization)
  Sender: FDA-Public Use
  Company Number: GR-MERCK-1103GRC00001

PATIENT
  Age: 80 Year
  Sex: Female

DRUGS (4)
  1. JANUMET [Suspect]
     Indication: TYPE 2 DIABETES MELLITUS
     Route: 048
     Dates: start: 20091101, end: 20100407
  2. HYDROCHLOROTHIAZIDE AND QUINAPRIL HYDROCHLORIDE [Concomitant]
     Route: 048
  3. SERTRALINE HYDROCHLORIDE [Concomitant]
     Route: 048
  4. CYANOCOBALAMIN AND PYRIDOXINE AND THIAMINE [Concomitant]
     Route: 065

REACTIONS (1)
  - PEMPHIGOID [None]
